FAERS Safety Report 24299620 (Version 1)
Quarter: 2024Q3

REPORT INFORMATION
  Report Type: Report from Study
  Country: GB (occurrence: GB)
  Receive Date: 20240909
  Receipt Date: 20240909
  Transmission Date: 20241016
  Serious: Yes (Other)
  Sender: IPSEN
  Company Number: GB-IPSEN Group, Research and Development-2024-17445

PATIENT
  Sex: Male

DRUGS (1)
  1. LANREOTIDE ACETATE [Suspect]
     Active Substance: LANREOTIDE ACETATE
     Indication: Product used for unknown indication
     Route: 065

REACTIONS (5)
  - Injection site nodule [Unknown]
  - Injection site pain [Not Recovered/Not Resolved]
  - Diarrhoea [Unknown]
  - Drug ineffective [Unknown]
  - Wrong technique in product usage process [Unknown]
